FAERS Safety Report 6178771-6 (Version None)
Quarter: 2009Q2

REPORT INFORMATION
  Report Type: 
  Country: None (occurrence: None)
  Receive Date: 20090504
  Receipt Date: 20090113
  Transmission Date: 20091009
  Serious: No
  Sender: FDA-Public Use
  Company Number: US-ALEXION-A200800387

PATIENT
  Sex: Male
  Weight: 70.19 kg

DRUGS (2)
  1. SOLIRIS [Suspect]
     Dosage: UNK, UNK
     Route: 042
  2. NARCOTIC ANALGESICS [Concomitant]

REACTIONS (9)
  - ASTHENIA [None]
  - BACK PAIN [None]
  - CHROMATURIA [None]
  - FATIGUE [None]
  - INJECTION SITE PAIN [None]
  - INJECTION SITE SWELLING [None]
  - MUSCLE SPASMS [None]
  - MYALGIA [None]
  - TENSION [None]
